FAERS Safety Report 14405595 (Version 3)
Quarter: 2018Q1

REPORT INFORMATION
  Report Type: Spontaneous
  Country: US (occurrence: US)
  Receive Date: 20180118
  Receipt Date: 20180313
  Transmission Date: 20180509
  Serious: Yes (Other)
  Sender: FDA-Public Use
  Company Number: US-PFIZER INC-2018022676

PATIENT
  Age: 56 Year
  Sex: Female
  Weight: 81.18 kg

DRUGS (1)
  1. XELJANZ XR [Suspect]
     Active Substance: TOFACITINIB CITRATE
     Indication: RHEUMATOID ARTHRITIS
     Dosage: 11 MG, DAILY
     Route: 048
     Dates: start: 2016

REACTIONS (5)
  - Sinusitis [Unknown]
  - Nasopharyngitis [Unknown]
  - Pneumonia [Unknown]
  - Hunger [Unknown]
  - Malaise [Unknown]
